FAERS Safety Report 22232911 (Version 1)
Quarter: 2023Q2

REPORT INFORMATION
  Report Type: Other
  Country: US (occurrence: None)
  Receive Date: 20230420
  Receipt Date: 20230420
  Transmission Date: 20230722
  Serious: No
  Sender: FDA-Public Use
  Company Number: US-ROCHE-3173699

PATIENT
  Age: 11 Year
  Sex: Female

DRUGS (11)
  1. BEVACIZUMAB [Suspect]
     Active Substance: BEVACIZUMAB
     Indication: Radiation necrosis
     Dosage: VOLUME OF 100 ML OVER 14 MINUTES
     Route: 013
  2. DEXAMETHASONE [Concomitant]
     Active Substance: DEXAMETHASONE
     Indication: Premedication
     Route: 065
  3. DEXAMETHASONE [Concomitant]
     Active Substance: DEXAMETHASONE
     Route: 065
  4. KEPPRA [Concomitant]
     Active Substance: LEVETIRACETAM
     Indication: Premedication
  5. ATROPINE [Concomitant]
     Active Substance: ATROPINE
     Route: 042
  6. MANNITOL [Concomitant]
     Active Substance: MANNITOL
     Dosage: 4 ML/SEC FOR 30 SEC
     Route: 013
  7. PENTOXIFYLLINE [Concomitant]
     Active Substance: PENTOXIFYLLINE
  8. VITAMIN E [Concomitant]
     Active Substance: .ALPHA.-TOCOPHEROL
  9. OXYGEN [Concomitant]
     Active Substance: OXYGEN
     Dosage: HYPERBARIC
  10. IBUPROFEN [Concomitant]
     Active Substance: IBUPROFEN
  11. VALIUM [Concomitant]
     Active Substance: DIAZEPAM
     Route: 042

REACTIONS (3)
  - Off label use [Unknown]
  - Off label use [Unknown]
  - No adverse event [Unknown]
